FAERS Safety Report 7125469-3 (Version None)
Quarter: 2010Q4

REPORT INFORMATION
  Report Type: 
  Country: None (occurrence: None)
  Receive Date: 20101129
  Receipt Date: 20101116
  Transmission Date: 20110411
  Serious: Yes (Other)
  Sender: FDA-Public Use
  Company Number: US-ROCHE-722940

PATIENT
  Sex: Male
  Weight: 101.6 kg

DRUGS (7)
  1. ACCUTANE [Suspect]
     Indication: ACNE
     Route: 048
     Dates: start: 19941213, end: 19950101
  2. ACCUTANE [Suspect]
     Route: 048
     Dates: start: 19970101
  3. MINOCIN [Concomitant]
     Route: 048
  4. BENZO-AC 10% #1 OINTMENT [Concomitant]
  5. CLEOCIN T [Concomitant]
  6. RETIN-A [Concomitant]
  7. CENTRUM [Concomitant]

REACTIONS (5)
  - CROHN'S DISEASE [None]
  - GASTROINTESTINAL INJURY [None]
  - HAEMORRHOIDS [None]
  - RASH MACULO-PAPULAR [None]
  - SCAR [None]
